FAERS Safety Report 21117072 (Version 1)
Quarter: 2022Q3

REPORT INFORMATION
  Report Type: Report from Study
  Country: US (occurrence: US)
  Receive Date: 20220722
  Receipt Date: 20220722
  Transmission Date: 20221026
  Serious: Yes (Hospitalization, Other)
  Sender: FDA-Public Use
  Company Number: US-GILEAD-2022-0589947

PATIENT
  Sex: Female

DRUGS (15)
  1. AZTREONAM LYSINE [Suspect]
     Active Substance: AZTREONAM LYSINE
     Indication: Cystic fibrosis
     Dosage: 75 MG, TID, 28/28
     Route: 055
     Dates: start: 20220614
  2. AZITHROMYCIN [Concomitant]
     Active Substance: AZITHROMYCIN
  3. BUDESONIDE\FORMOTEROL FUMARATE [Concomitant]
     Active Substance: BUDESONIDE\FORMOTEROL FUMARATE
  4. CIPROFLOXACIN HYDROCHLORIDE [Concomitant]
     Active Substance: CIPROFLOXACIN HYDROCHLORIDE
  5. CLARITHROMYCIN [Concomitant]
     Active Substance: CLARITHROMYCIN
  6. COMBIVENT [Concomitant]
     Active Substance: ALBUTEROL SULFATE\IPRATROPIUM BROMIDE
  7. FERROUS SULFATE [Concomitant]
     Active Substance: FERROUS SULFATE
  8. GLUCERNA [Concomitant]
     Active Substance: AMINO ACIDS\DEXTROSE\ELECTROLYTES NOS\SOYBEAN OIL\VITAMINS
  9. IBUPROFEN [Concomitant]
     Active Substance: IBUPROFEN
  10. ISIBLOOM [Concomitant]
     Active Substance: DESOGESTREL\ETHINYL ESTRADIOL
  11. NORETHIN [Concomitant]
  12. PULOMZYME [Concomitant]
  13. SODIUM CHLORIDE [Concomitant]
     Active Substance: SODIUM CHLORIDE
  14. TOBI [Concomitant]
     Active Substance: TOBRAMYCIN
  15. TRIKAFTA [Concomitant]
     Active Substance: ELEXACAFTOR\IVACAFTOR\TEZACAFTOR

REACTIONS (1)
  - COVID-19 [Recovered/Resolved]
